FAERS Safety Report 18473284 (Version 1)
Quarter: 2020Q4

REPORT INFORMATION
  Report Type: Spontaneous
  Country: US (occurrence: US)
  Receive Date: 20201106
  Receipt Date: 20201106
  Transmission Date: 20210114
  Serious: Yes (Hospitalization, Other)
  Sender: FDA-Public Use
  Company Number: US-SA-2020SA311011

PATIENT

DRUGS (1)
  1. DUPIXENT [Suspect]
     Active Substance: DUPILUMAB
     Indication: PRODUCT USED FOR UNKNOWN INDICATION
     Dosage: 300 MG, QOW
     Route: 058

REACTIONS (5)
  - Upper respiratory tract infection [Unknown]
  - Thrombosis [Unknown]
  - Therapy interrupted [Unknown]
  - Chronic obstructive pulmonary disease [Unknown]
  - Illness [Unknown]

NARRATIVE: CASE EVENT DATE: 2020
